FAERS Safety Report 4432499-9 (Version None)
Quarter: 2004Q3

REPORT INFORMATION
  Report Type: 
  Country: None (occurrence: None)
  Receive Date: 20040820
  Receipt Date: 20040811
  Transmission Date: 20050211
  Serious: Yes (Other)
  Sender: FDA-Public Use
  Company Number: 2004US000539

PATIENT
  Age: 34 Year
  Sex: Female
  Weight: 49 kg

DRUGS (3)
  1. PROGRAF [Suspect]
     Indication: LUNG TRANSPLANT
     Dosage: ORAL
     Route: 048
  2. CELLCEPT [Concomitant]
  3. VORICONAZOLE (VORICONAZOLE) [Concomitant]

REACTIONS (9)
  - ANTIBODY TEST POSITIVE [None]
  - CSF TEST ABNORMAL [None]
  - DRUG TOXICITY [None]
  - LYME DISEASE [None]
  - OPTIC ATROPHY [None]
  - OPTIC NEUROPATHY [None]
  - PAPILLOEDEMA [None]
  - SCOTOMA [None]
  - VISUAL FIELD DEFECT [None]
